FAERS Safety Report 20050498 (Version 1)
Quarter: 2021Q4

REPORT INFORMATION
  Report Type: Spontaneous
  Country: CN (occurrence: CN)
  Receive Date: 20211109
  Receipt Date: 20211109
  Transmission Date: 20220303
  Serious: Yes (Other)
  Sender: FDA-Public Use
  Company Number: CN-BAXTER-2021BAX034687

PATIENT
  Age: 55 Year
  Sex: Female
  Weight: 50 kg

DRUGS (4)
  1. CYCLOPHOSPHAMIDE [Suspect]
     Active Substance: CYCLOPHOSPHAMIDE
     Indication: Mucinous breast carcinoma
     Dosage: CYCLOPHOSPHAMIDE FOR INJECTION 0.9G + NS 250ML
     Route: 041
     Dates: start: 20211008, end: 20211008
  2. SODIUM CHLORIDE [Suspect]
     Active Substance: SODIUM CHLORIDE
     Indication: Medication dilution
     Dosage: CYCLOPHOSPHAMIDE FOR INJECTION 0.9G + NS 250ML
     Route: 041
     Dates: start: 20211008, end: 20211008
  3. SODIUM CHLORIDE [Suspect]
     Active Substance: SODIUM CHLORIDE
     Dosage: EPIRUBICIN HYDROCHLORIDE FOR INJECTION 100MG + NS 100ML
     Route: 041
     Dates: start: 20211008, end: 20211008
  4. EPIRUBICIN HYDROCHLORIDE [Suspect]
     Active Substance: EPIRUBICIN HYDROCHLORIDE
     Indication: Mucinous breast carcinoma
     Dosage: EPIRUBICIN HYDROCHLORIDE FOR INJECTION 100MG + NS 100ML
     Route: 041
     Dates: start: 20211008, end: 20211008

REACTIONS (1)
  - Myelosuppression [Recovering/Resolving]

NARRATIVE: CASE EVENT DATE: 20211019
